FAERS Safety Report 23464743 (Version 2)
Quarter: 2024Q1

REPORT INFORMATION
  Report Type: Report from Study
  Country: US (occurrence: None)
  Receive Date: 20240201
  Receipt Date: 20240319
  Transmission Date: 20240410
  Serious: Yes (Hospitalization)
  Sender: FDA-Public Use
  Company Number: 2024A019555

PATIENT
  Sex: Male

DRUGS (1)
  1. FASENRA [Suspect]
     Active Substance: BENRALIZUMAB
     Indication: Asthma
     Dosage: INJECT 30MG SUBCUTANEOUSLY EVERY 4 WEEKS FOR MONTHS 2 AND 3, THEN EVERY 8 WEEKS THEREAFTER30.0MG ...
     Route: 058

REACTIONS (1)
  - Nephrolithiasis [Unknown]
